FAERS Safety Report 25947993 (Version 1)
Quarter: 2025Q4

REPORT INFORMATION
  Report Type: Spontaneous
  Country: US (occurrence: US)
  Receive Date: 20251022
  Receipt Date: 20251022
  Transmission Date: 20260117
  Serious: Yes (Other)
  Sender: ALEXION PHARMACEUTICALS
  Company Number: US-AstraZeneca-CH-00973099A

PATIENT
  Sex: Female

DRUGS (1)
  1. BREZTRI [Suspect]
     Active Substance: BUDESONIDE\FORMOTEROL\GLYCOPYRROLATE
     Dosage: 160 MICROGRAM, BID
     Route: 065

REACTIONS (9)
  - Blindness [Unknown]
  - Dyspnoea [Unknown]
  - Aphonia [Unknown]
  - Balance disorder [Unknown]
  - Dizziness [Unknown]
  - Vocal cord disorder [Unknown]
  - Skin wrinkling [Unknown]
  - Decreased activity [Unknown]
  - Cough [Unknown]
